FAERS Safety Report 24698971 (Version 1)
Quarter: 2024Q4

REPORT INFORMATION
  Report Type: Spontaneous
  Country: US (occurrence: US)
  Receive Date: 20241205
  Receipt Date: 20241205
  Transmission Date: 20250114
  Serious: Yes (Other)
  Sender: COOPERSURGICAL
  Company Number: US-COOPERSURGICAL, INC.-2024CPS003671

PATIENT
  Age: 34 Year
  Sex: Female
  Weight: 56.236 kg

DRUGS (1)
  1. PARAGARD T 380A [Suspect]
     Active Substance: COPPER
     Indication: Contraception
     Dosage: UNK
     Route: 015
     Dates: start: 20130115

REACTIONS (12)
  - Reproductive complication associated with device [Not Recovered/Not Resolved]
  - Device breakage [Unknown]
  - Foreign body in reproductive tract [Unknown]
  - Complication of device removal [Unknown]
  - Abortion spontaneous [Unknown]
  - Device material issue [Unknown]
  - Complication of pregnancy [Not Recovered/Not Resolved]
  - Emotional disorder [Unknown]
  - Abnormal uterine bleeding [Not Recovered/Not Resolved]
  - Device expulsion [Recovered/Resolved]
  - Discomfort [Not Recovered/Not Resolved]
  - Heavy menstrual bleeding [Unknown]

NARRATIVE: CASE EVENT DATE: 20130211
